FAERS Safety Report 9255839 (Version 2)
Quarter: 2016Q1

REPORT INFORMATION
  Report Type: Report from Study
  Country: JP (occurrence: JP)
  Receive Date: 20130425
  Receipt Date: 20160307
  Transmission Date: 20160526
  Serious: Yes (Death, Other)
  Sender: FDA-Public Use
  Company Number: JP-ALEXION PHARMACEUTICALS INC.-A201300851

PATIENT
  Age: 53 Year
  Sex: Male

DRUGS (9)
  1. SOLIRIS [Suspect]
     Active Substance: ECULIZUMAB
     Indication: PAROXYSMAL NOCTURNAL HAEMOGLOBINURIA
     Dosage: 600 MG, QW
     Route: 042
     Dates: start: 20120914, end: 20121005
  2. SOLIRIS [Suspect]
     Active Substance: ECULIZUMAB
     Dosage: 900 MG, UNK
     Route: 042
     Dates: start: 20121012, end: 20121101
  3. NEORAL [Concomitant]
     Active Substance: CYCLOSPORINE
     Indication: PRODUCT USED FOR UNKNOWN INDICATION
     Dosage: 150-200MG, DAILY
     Route: 048
     Dates: end: 20121109
  4. BREDININ [Concomitant]
     Active Substance: MIZORIBINE
     Dosage: UNK
     Dates: start: 20120828, end: 20120913
  5. VFEND [Suspect]
     Active Substance: VORICONAZOLE
     Dosage: 200 MG, QD
     Route: 041
     Dates: start: 20121103, end: 20121122
  6. PRIMOBOLAN-DEPOT [Concomitant]
     Active Substance: METHENOLONE ENANTHATE
     Dosage: UNK
  7. PREDONINE [Concomitant]
     Active Substance: PREDNISOLONE\PREDNISOLONE ACETATE\PREDNISOLONE SODIUM SUCCINATE
     Dosage: 5 MG, TID
     Route: 048
     Dates: start: 20120811, end: 20121121
  8. GRAN [Concomitant]
     Active Substance: FILGRASTIM
     Dosage: UNK
     Dates: start: 20121218
  9. VFEND [Suspect]
     Active Substance: VORICONAZOLE
     Indication: PNEUMONIA STAPHYLOCOCCAL
     Dosage: 400 MG, DAILY
     Route: 042
     Dates: start: 20121102

REACTIONS (4)
  - Pneumonia staphylococcal [Fatal]
  - Intracranial pressure increased [Not Recovered/Not Resolved]
  - Rash pruritic [Unknown]
  - Headache [Unknown]

NARRATIVE: CASE EVENT DATE: 20121001
